FAERS Safety Report 18495308 (Version 1)
Quarter: 2020Q4

REPORT INFORMATION
  Report Type: Spontaneous
  Country: US (occurrence: US)
  Receive Date: 20201112
  Receipt Date: 20201112
  Transmission Date: 20210114
  Serious: Yes (Other)
  Sender: FDA-Public Use
  Company Number: US-CELGENEUS-USA-20201101195

PATIENT
  Sex: Female

DRUGS (2)
  1. REVLIMID [Suspect]
     Active Substance: LENALIDOMIDE
     Indication: PLASMA CELL MYELOMA
  2. REVLIMID [Suspect]
     Active Substance: LENALIDOMIDE
     Indication: END STAGE RENAL DISEASE
     Dosage: 10 MILLIGRAM
     Route: 048
     Dates: start: 20201008

REACTIONS (2)
  - Cardiac disorder [Unknown]
  - Illness [Unknown]

NARRATIVE: CASE EVENT DATE: 2020
